FAERS Safety Report 10844733 (Version 2)
Quarter: 2015Q1

REPORT INFORMATION
  Report Type: Report from Study
  Country: NZ (occurrence: NZ)
  Receive Date: 20150220
  Receipt Date: 20150304
  Transmission Date: 20150721
  Serious: Yes (Hospitalization)
  Sender: FDA-Public Use
  Company Number: NZ-BAYER-2015-025352

PATIENT
  Sex: Female

DRUGS (3)
  1. SORAFENIB (RAF KINASE INHIBITOR) [Suspect]
     Active Substance: SORAFENIB
     Dosage: UNK
     Route: 048
     Dates: end: 20141230
  2. CLEXANE [Concomitant]
     Active Substance: ENOXAPARIN SODIUM
     Dosage: UNK
     Dates: start: 20150107
  3. CLEXANE [Concomitant]
     Active Substance: ENOXAPARIN SODIUM
     Dosage: UNK

REACTIONS (8)
  - Gastrointestinal haemorrhage [None]
  - Lethargy [None]
  - Nausea [None]
  - Myalgia [None]
  - Diarrhoea [Recovered/Resolved with Sequelae]
  - Melaena [None]
  - Abdominal pain [Recovered/Resolved with Sequelae]
  - Abdominal discomfort [None]

NARRATIVE: CASE EVENT DATE: 201412
